FAERS Safety Report 9177137 (Version 1)
Quarter: 2013Q1

REPORT INFORMATION
  Report Type: Spontaneous
  Country: US (occurrence: None)
  Receive Date: 20130320
  Receipt Date: 20130320
  Transmission Date: 20140127
  Serious: Yes (Hospitalization)
  Sender: FDA-Public Use
  Company Number: None

PATIENT
  Sex: Male
  Weight: 92.1 kg

DRUGS (6)
  1. CYCLOPHOSPHAMIDE [Suspect]
  2. PENTOSTATIN [Suspect]
  3. RITUXIMAB (MOAB C2B8 ANTI CD20, CHIMERIC) [Suspect]
  4. CARVEDILOL [Concomitant]
  5. NEULASTA [Concomitant]
  6. SPIRONOLACTONE [Concomitant]

REACTIONS (5)
  - Dyspnoea paroxysmal nocturnal [None]
  - Cough [None]
  - Pyrexia [None]
  - Pneumonia [None]
  - Cardiac failure congestive [None]
